FAERS Safety Report 5976490-X (Version None)
Quarter: 2008Q4

REPORT INFORMATION
  Report Type: 
  Country: None (occurrence: None)
  Receive Date: 20081126
  Receipt Date: 20081111
  Transmission Date: 20090506
  Serious: Yes (Other)
  Sender: FDA-Public Use
  Company Number: CHPA2008US19567

PATIENT
  Age: 1 Year
  Sex: Female

DRUGS (2)
  1. TRIAMINIC UNKNOWN (NCH) (UNKNOWN) SYRUP [Suspect]
     Indication: NASOPHARYNGITIS
     Dosage: 0.5 TSP, QD, ORAL
     Route: 048
     Dates: start: 20070101, end: 20070101
  2. ADVIL [Concomitant]

REACTIONS (2)
  - ASTHMA [None]
  - INCORRECT DOSE ADMINISTERED [None]
